FAERS Safety Report 10525071 (Version 2)
Quarter: 2014Q4

REPORT INFORMATION
  Report Type: Spontaneous
  Country: US (occurrence: US)
  Receive Date: 20141017
  Receipt Date: 20141111
  Transmission Date: 20150528
  Serious: No
  Sender: FDA-Public Use
  Company Number: US-PFIZER INC-2014281549

PATIENT
  Age: 58 Year
  Sex: Female
  Weight: 76 kg

DRUGS (16)
  1. ALENDRONATE [Concomitant]
     Active Substance: ALENDRONATE SODIUM
     Dosage: 70 MG, WEEKLY (IN MORNING)
     Route: 048
     Dates: start: 20140519
  2. CALCIUM D3 ^STADA^ [Concomitant]
     Active Substance: CALCIUM\CHOLECALCIFEROL
     Dosage: 600 MG, 2X/DAY(600MG CALCIUM (1,500MG)-200 UNIT)
     Dates: start: 20071220
  3. GABAPENTIN. [Suspect]
     Active Substance: GABAPENTIN
     Indication: FIBROMYALGIA
     Dosage: 1200 MG, DAILY
     Dates: start: 201402, end: 201410
  4. FLEXERIL [Concomitant]
     Active Substance: CYCLOBENZAPRINE HYDROCHLORIDE
     Dosage: 10MG TABLET (2 TABLETS EVERY BEDTIME)
     Route: 048
     Dates: start: 20140930
  5. METOPROLOL TARTRATE. [Concomitant]
     Active Substance: METOPROLOL TARTRATE
     Dosage: 25MG (0.5 TABLET 2 TIMES EVERY DAY)
     Route: 048
     Dates: start: 20140912
  6. NEURONTIN [Suspect]
     Active Substance: GABAPENTIN
     Dosage: 300MG (1TWICE A DAY AND 2 AT BEDTIME)
     Route: 048
     Dates: start: 20140215, end: 20140928
  7. XANAX [Concomitant]
     Active Substance: ALPRAZOLAM
     Dosage: 0.25 MG, ( THREE TABLETS AT BEDTIME)
     Dates: start: 20140915
  8. FEXOFENADINE, PSEUDOEPHEDRINE HYDROCHLORIDE [Concomitant]
     Dosage: FEXOFENADINE 60MG, PSEUDOEPHEDRINE ER 120MG (1 TABLET 2 TIMES EVERY DAY)
     Route: 048
     Dates: start: 20140507
  9. MULTIVITAMINS [Concomitant]
     Active Substance: VITAMINS
     Dosage: 1 DF, DAILY
     Route: 048
     Dates: start: 20071220
  10. ETODOLAC. [Concomitant]
     Active Substance: ETODOLAC
     Dosage: 400 MG, 2X/DAY( 1 TABLET (400MG) BY ORAL ROUTE 2 TIMES EVERY DAY WITH FOOD)
     Route: 048
     Dates: start: 20140915
  11. OMEPRAZOLE. [Concomitant]
     Active Substance: OMEPRAZOLE
     Dosage: 20 MG, 1X/DAY (EVERY DAY BEFORE A MEAL)
     Route: 048
     Dates: start: 20140317
  12. VITAMIN D3 [Concomitant]
     Active Substance: CHOLECALCIFEROL
     Dosage: 2000 UNITS ( 1 TABLET EVERY DAY)
     Route: 048
     Dates: start: 20130920
  13. PLAQUENIL [Concomitant]
     Active Substance: HYDROXYCHLOROQUINE SULFATE
     Dosage: 200 MG, 1X/DAY
     Route: 048
     Dates: start: 20140915
  14. GABAPENTIN. [Suspect]
     Active Substance: GABAPENTIN
     Dosage: 600 MG, DAILY
  15. TRAMADOL [Concomitant]
     Active Substance: TRAMADOL
     Dosage: UNK
  16. ULTRAM [Concomitant]
     Active Substance: TRAMADOL HYDROCHLORIDE
     Dosage: 50 MG, FOUR TIMES A DAY AS NEEDED
     Route: 048
     Dates: start: 20140915

REACTIONS (2)
  - Hepatic enzyme increased [Recovered/Resolved]
  - Liver function test abnormal [Recovered/Resolved]

NARRATIVE: CASE EVENT DATE: 20140915
